FAERS Safety Report 4308453-4 (Version None)
Quarter: 2004Q1

REPORT INFORMATION
  Report Type: 
  Country: None (occurrence: None)
  Receive Date: 20040301
  Receipt Date: 20030120
  Transmission Date: 20041129
  Serious: Yes (Death, Hospitalization)
  Sender: FDA-Public Use
  Company Number: CH-ROCHE-329806

PATIENT
  Age: 56 Year
  Sex: Female
  Weight: 69 kg

DRUGS (18)
  1. ROCEPHIN [Suspect]
     Indication: DRUG USE FOR UNKNOWN INDICATION
     Route: 065
     Dates: start: 20030215, end: 20030314
  2. PEG-INTERFERON ALFA 2A (RO 25-8310) [Suspect]
     Route: 058
     Dates: start: 20020806, end: 20030620
  3. PEG-INTERFERON ALFA 2A (RO 25-8310) [Suspect]
     Route: 058
     Dates: start: 20020711
  4. RIBAVIRIN [Suspect]
     Route: 048
     Dates: start: 20020711
  5. RIBAVIRIN [Suspect]
     Route: 048
     Dates: start: 20020806, end: 20030620
  6. CLINDAMYCIN HCL [Suspect]
     Route: 065
     Dates: start: 20030215, end: 20030314
  7. ZINAT [Concomitant]
     Dates: start: 20030101
  8. SPIROLACTONE [Concomitant]
  9. TOREM [Concomitant]
     Dates: end: 20030620
  10. BENERVA [Concomitant]
  11. DUPHALAC [Concomitant]
     Dates: start: 20020711, end: 20030620
  12. VITAMIN K TAB [Concomitant]
     Dates: start: 20020711, end: 20030620
  13. ALDACTONE [Concomitant]
     Dates: start: 20020711, end: 20030620
  14. PRIMPERAN INJ [Concomitant]
     Dates: end: 20030620
  15. AUGMENTIN [Concomitant]
     Dates: start: 20030314, end: 20030321
  16. PREMELLA [Concomitant]
     Dates: end: 20020620
  17. TRAMADOL HCL [Concomitant]
     Dates: end: 20030620
  18. FLECTOR TISSUGEL [Concomitant]
     Dates: end: 20030620

REACTIONS (5)
  - EMPYEMA [None]
  - PLEURAL EFFUSION [None]
  - PNEUMONIA [None]
  - SEPSIS [None]
  - STAPHYLOCOCCAL INFECTION [None]
